FAERS Safety Report 17659100 (Version 2)
Quarter: 2023Q2

REPORT INFORMATION
  Report Type: Spontaneous
  Country: US (occurrence: US)
  Receive Date: 20200413
  Receipt Date: 20230524
  Transmission Date: 20230721
  Serious: No
  Sender: FDA-Public Use
  Company Number: US-BION-007960

PATIENT

DRUGS (1)
  1. IBUPROFEN MINIS [Suspect]
     Active Substance: IBUPROFEN
     Indication: Migraine
     Dosage: STRENGTH: 200 MG?DOSE: 4 AT A TIME (200 MG EACH)

REACTIONS (3)
  - Product use in unapproved indication [Not Recovered/Not Resolved]
  - Wrong technique in product usage process [Not Recovered/Not Resolved]
  - Incorrect dose administered [Not Recovered/Not Resolved]
